FAERS Safety Report 17966275 (Version 4)
Quarter: 2021Q1

REPORT INFORMATION
  Report Type: Spontaneous
  Country: DE (occurrence: DE)
  Receive Date: 20200630
  Receipt Date: 20210204
  Transmission Date: 20210419
  Serious: Yes (Other)
  Sender: FDA-Public Use
  Company Number: DE-009507513-2006DEU010095

PATIENT
  Age: 61 Year
  Sex: Male

DRUGS (1)
  1. BCG LIVE [Suspect]
     Active Substance: BACILLUS CALMETTE-GUERIN SUBSTRAIN TICE LIVE ANTIGEN
     Indication: BLADDER TRANSITIONAL CELL CARCINOMA
     Dosage: 6?WEEK INDUCTION SCHEME AND MONTHLY MAINTENANCE THERAPY
     Route: 043
     Dates: start: 201609, end: 201709

REACTIONS (2)
  - Intervertebral discitis [Unknown]
  - Disseminated Bacillus Calmette-Guerin infection [Unknown]

NARRATIVE: CASE EVENT DATE: 201907
